FAERS Safety Report 21773154 (Version 1)
Quarter: 2022Q4

REPORT INFORMATION
  Report Type: Spontaneous
  Country: ES (occurrence: ES)
  Receive Date: 20221223
  Receipt Date: 20221223
  Transmission Date: 20230113
  Serious: Yes (Hospitalization, Other)
  Sender: FDA-Public Use
  Company Number: ES-JNJFOC-20221233271

PATIENT

DRUGS (1)
  1. IBUPROFEN [Suspect]
     Active Substance: IBUPROFEN
     Indication: Product used for unknown indication
     Route: 065

REACTIONS (9)
  - Depressed level of consciousness [Unknown]
  - Irritability [Unknown]
  - Agitation [Unknown]
  - Gastrointestinal disorder [Unknown]
  - Vomiting [Unknown]
  - Abdominal pain [Unknown]
  - Somnolence [Unknown]
  - Dizziness [Unknown]
  - Toxicity to various agents [Unknown]
